FAERS Safety Report 9536285 (Version 3)
Quarter: 2013Q4

REPORT INFORMATION
  Report Type: Spontaneous
  Country: PT (occurrence: PT)
  Receive Date: 20130919
  Receipt Date: 20131009
  Transmission Date: 20140711
  Serious: Yes (Disabling, Other)
  Sender: FDA-Public Use
  Company Number: PT-JNJFOC-20130906311

PATIENT
  Age: 64 Year
  Sex: Female

DRUGS (8)
  1. INFLIXIMAB, RECOMBINANT [Suspect]
     Indication: PSORIATIC ARTHROPATHY
     Route: 042
     Dates: start: 20120517, end: 20130107
  2. INFLIXIMAB, RECOMBINANT [Suspect]
     Indication: PSORIATIC ARTHROPATHY
     Route: 042
     Dates: start: 20100906, end: 20110602
  3. INFLIXIMAB, RECOMBINANT [Suspect]
     Indication: PSORIATIC ARTHROPATHY
     Route: 042
  4. INFLIXIMAB, RECOMBINANT [Suspect]
     Indication: PSORIATIC ARTHROPATHY
     Route: 042
     Dates: start: 20121105
  5. METHOTREXATE [Concomitant]
     Indication: PSORIATIC ARTHROPATHY
     Route: 065
     Dates: start: 1996
  6. PREDNISOLONE [Concomitant]
     Indication: PSORIATIC ARTHROPATHY
     Route: 065
  7. FOLIC ACID [Concomitant]
     Route: 065
  8. PARACETAMOL/ TRAMADOL [Concomitant]
     Route: 065

REACTIONS (5)
  - Knee arthroplasty [Unknown]
  - Skin infection [Recovering/Resolving]
  - Cellulitis [Recovered/Resolved with Sequelae]
  - Arthritis bacterial [Recovered/Resolved with Sequelae]
  - Skin necrosis [Recovering/Resolving]
